FAERS Safety Report 8221790-6 (Version None)
Quarter: 2012Q1

REPORT INFORMATION
  Report Type: 
  Country: None (occurrence: None)
  Receive Date: 20120320
  Receipt Date: 20120320
  Transmission Date: 20120608
  Serious: No
  Sender: FDA-Public Use
  Company Number: None

PATIENT
  Age: 48 Year
  Sex: Male
  Weight: 90.718 kg

DRUGS (1)
  1. GRALISE [Suspect]
     Dosage: 300
     Dates: start: 20120316, end: 20120316

REACTIONS (2)
  - HEART RATE ABNORMAL [None]
  - DYSPNOEA [None]
